FAERS Safety Report 20920963 (Version 1)
Quarter: 2022Q2

REPORT INFORMATION
  Report Type: Spontaneous
  Country: US (occurrence: None)
  Receive Date: 20220606
  Receipt Date: 20220606
  Transmission Date: 20220721
  Serious: Yes (Hospitalization)
  Sender: FDA-Public Use
  Company Number: None

PATIENT
  Age: 75 Year
  Sex: Male
  Weight: 77.8 kg

DRUGS (1)
  1. BREYANZI [Suspect]
     Active Substance: LISOCABTAGENE MARALEUCEL
     Indication: Diffuse large B-cell lymphoma
     Dates: start: 20220407, end: 20220407

REACTIONS (7)
  - Cytokine release syndrome [None]
  - Hypercalcaemia [None]
  - Abdominal pain [None]
  - Abdominal distension [None]
  - Constipation [None]
  - Neurotoxicity [None]
  - Blood 1,25-dihydroxycholecalciferol increased [None]

NARRATIVE: CASE EVENT DATE: 20220407
